FAERS Safety Report 19782584 (Version 1)
Quarter: 2021Q3

REPORT INFORMATION
  Report Type: Spontaneous
  Country: US (occurrence: US)
  Receive Date: 20210902
  Receipt Date: 20210902
  Transmission Date: 20211014
  Serious: No
  Sender: FDA-Public Use
  Company Number: US-ENDO PHARMACEUTICALS INC-2020-006174

PATIENT
  Sex: Female
  Weight: 65.76 kg

DRUGS (1)
  1. PREDNISONE. [Suspect]
     Active Substance: PREDNISONE
     Indication: RHEUMATOID ARTHRITIS
     Dosage: 10 MG, DAILY WITH FOOD AND FULL GLASS WATER
     Route: 048
     Dates: start: 202008

REACTIONS (5)
  - Initial insomnia [Unknown]
  - Depression [Unknown]
  - Abdominal discomfort [Unknown]
  - Weight increased [Unknown]
  - Affect lability [Unknown]
